FAERS Safety Report 20185724 (Version 1)
Quarter: 2021Q4

REPORT INFORMATION
  Report Type: Spontaneous
  Country: US (occurrence: US)
  Receive Date: 20211215
  Receipt Date: 20211215
  Transmission Date: 20220303
  Serious: No
  Sender: FDA-Public Use
  Company Number: US-NEUROCRINE BIOSCIENCES INC.-2021NBI07034

PATIENT

DRUGS (10)
  1. INGREZZA [Suspect]
     Active Substance: VALBENAZINE
     Indication: Product used for unknown indication
     Dosage: 80 MILLIGRAM
     Route: 048
  2. ABILIFY [Concomitant]
     Active Substance: ARIPIPRAZOLE
     Dosage: UNK
  3. LAMOTRIGINE [Concomitant]
     Active Substance: LAMOTRIGINE
     Dosage: UNK
  4. LITHIUM [Concomitant]
     Active Substance: LITHIUM
     Dosage: 900 MILLIGRAM
  5. SYNTHROID [Concomitant]
     Active Substance: LEVOTHYROXINE SODIUM
     Dosage: UNK
  6. LISINOPRIL [Concomitant]
     Active Substance: LISINOPRIL
     Dosage: UNK
  7. JANUMET [Concomitant]
     Active Substance: METFORMIN HYDROCHLORIDE\SITAGLIPTIN PHOSPHATE
     Dosage: UNK
  8. CANNABIDIOL [Concomitant]
     Active Substance: CANNABIDIOL
     Dosage: UNK, OCASSIONALLY
  9. 5-HTP [OXITRIPTAN;PYRIDOXINE HYDROCHLORIDE;VALERIANA OFFICINALIS ROOT] [Concomitant]
     Dosage: UNK
  10. SEMAX [CITALOPRAM HYDROBROMIDE] [Concomitant]
     Dosage: UNK

REACTIONS (3)
  - Dyspnoea [Unknown]
  - Electrocardiogram QT prolonged [Unknown]
  - Somnolence [Unknown]
